FAERS Safety Report 5573640-4 (Version None)
Quarter: 2007Q4

REPORT INFORMATION
  Report Type: 
  Country: None (occurrence: None)
  Receive Date: 20071226
  Receipt Date: 20071206
  Transmission Date: 20080405
  Serious: Yes (Death)
  Sender: FDA-Public Use
  Company Number: AU-SANOFI-SYNTHELABO-A01200610825

PATIENT
  Sex: Female

DRUGS (5)
  1. ZYPREXA [Concomitant]
     Dosage: UNK
     Route: 065
  2. ENDEP [Concomitant]
     Dosage: UNK
     Route: 065
  3. LOVAN [Concomitant]
     Dosage: 20 MG
     Route: 065
  4. DIANE 35 [Concomitant]
     Dosage: UNK
     Route: 065
  5. STILNOX [Suspect]
     Indication: DRUG USE FOR UNKNOWN INDICATION
     Dosage: 10 MG
     Route: 048
     Dates: start: 20040812

REACTIONS (2)
  - AKATHISIA [None]
  - COMPLETED SUICIDE [None]
